FAERS Safety Report 16048955 (Version 1)
Quarter: 2019Q1

REPORT INFORMATION
  Report Type: Spontaneous
  Country: US (occurrence: US)
  Receive Date: 20190307
  Receipt Date: 20190307
  Transmission Date: 20190418
  Serious: No
  Sender: FDA-Public Use
  Company Number: US-TAKEDA-2019TUS011042

PATIENT
  Sex: Female
  Weight: 61.23 kg

DRUGS (1)
  1. DEXILANT [Suspect]
     Active Substance: DEXLANSOPRAZOLE
     Indication: GASTROINTESTINAL DISORDER
     Dosage: 60 MILLIGRAM, QD
     Route: 048

REACTIONS (2)
  - Incorrect product administration duration [Unknown]
  - Diarrhoea [Unknown]
